FAERS Safety Report 11744350 (Version 1)
Quarter: 2015Q4

REPORT INFORMATION
  Report Type: Spontaneous
  Country: US (occurrence: US)
  Receive Date: 20151116
  Receipt Date: 20151116
  Transmission Date: 20160304
  Serious: No
  Sender: FDA-Public Use
  Company Number: US-LPDUSPRD-20150592

PATIENT
  Age: 77 Year
  Sex: Male

DRUGS (19)
  1. LASIX [Concomitant]
     Active Substance: FUROSEMIDE
     Dosage: DOSE NOT PROVIDED
     Route: 065
  2. PREDNISONE. [Concomitant]
     Active Substance: PREDNISONE
     Dosage: DOSE NOT PROVIDED
     Route: 065
  3. INJECTAFER [Suspect]
     Active Substance: FERRIC CARBOXYMALTOSE
     Dosage: 750 MG
     Route: 042
     Dates: start: 20150625
  4. BUDESONIDE/FORMOTEROL [Concomitant]
     Active Substance: BUDESONIDE\FORMOTEROL
     Dosage: DOSE NOT PROVIDED
     Route: 055
  5. SPIRIVA [Concomitant]
     Active Substance: TIOTROPIUM BROMIDE MONOHYDRATE
     Dosage: DOSE NOT PROVIDED
     Route: 065
  6. TERAZOSIN [Concomitant]
     Active Substance: TERAZOSIN\TERAZOSIN HYDROCHLORIDE
     Dosage: DOSE NOT PROVIDED
     Route: 065
  7. MULTIVITAMIN [Concomitant]
     Active Substance: VITAMINS
     Dosage: DOSE NOT PROVIDED
     Route: 065
  8. ALLOPURINOL. [Concomitant]
     Active Substance: ALLOPURINOL
     Dosage: DOSE NOT PROVIDED
     Route: 065
  9. LIPITOR [Concomitant]
     Active Substance: ATORVASTATIN CALCIUM
     Dosage: DOSE NOT PROVIDED
     Route: 065
  10. SPRIONOLACTONE [Concomitant]
     Dosage: DOSE NOT PROVIDED
     Route: 065
  11. CLARITIN [Concomitant]
     Active Substance: LORATADINE
     Dosage: DOSE NOT PROVIDED
     Route: 065
  12. METROPROLOL [Concomitant]
     Active Substance: METOPROLOL
     Dosage: DOSE NOT PROVIDED
     Route: 065
  13. NIFEDIPINE. [Concomitant]
     Active Substance: NIFEDIPINE
     Dosage: DOSE NOT PROVIDED
     Route: 065
  14. PANTOPRAZOLE [Concomitant]
     Active Substance: PANTOPRAZOLE SODIUM
     Dosage: DOSE NOT PROVIDED
     Route: 065
  15. MUCINEX [Concomitant]
     Active Substance: GUAIFENESIN
     Dosage: DOSE NOT PROVIDED
     Route: 065
  16. ALBUTEROL. [Concomitant]
     Active Substance: ALBUTEROL
     Dosage: DOSE NOT PROVIDED
     Route: 065
  17. IRON CHEWS [Suspect]
     Active Substance: IRON PENTACARBONYL
     Dosage: DOSE NOT PROVIDED
     Route: 048
     Dates: end: 201510
  18. SERTRALINE [Concomitant]
     Active Substance: SERTRALINE HYDROCHLORIDE
     Dosage: DOSE NOT PROVIDED
     Route: 065
  19. FINASTERIDE. [Concomitant]
     Active Substance: FINASTERIDE
     Dosage: DOSE NOT PROVIDED
     Route: 065

REACTIONS (2)
  - Decreased appetite [Recovered/Resolved]
  - Dysgeusia [Recovering/Resolving]

NARRATIVE: CASE EVENT DATE: 2015
